FAERS Safety Report 14826244 (Version 4)
Quarter: 2018Q2

REPORT INFORMATION
  Report Type: Spontaneous
  Country: US (occurrence: US)
  Receive Date: 20180430
  Receipt Date: 20180627
  Transmission Date: 20180711
  Serious: Yes (Hospitalization, Other)
  Sender: FDA-Public Use
  Company Number: US-AMGEN-USASP2018056649

PATIENT
  Age: 71 Year
  Sex: Female

DRUGS (21)
  1. MIRTAZAPINE. [Concomitant]
     Active Substance: MIRTAZAPINE
     Indication: PRODUCT USED FOR UNKNOWN INDICATION
     Dosage: 15 MG, QD
  2. FOLIC ACID. [Concomitant]
     Active Substance: FOLIC ACID
     Indication: PRODUCT USED FOR UNKNOWN INDICATION
     Dosage: UNK
  3. TYLENOL WITH CODEINE [Concomitant]
     Active Substance: ACETAMINOPHEN\CODEINE PHOSPHATE
     Indication: PRODUCT USED FOR UNKNOWN INDICATION
     Dosage: UNK
  4. XELJANZ XR [Suspect]
     Active Substance: TOFACITINIB CITRATE
     Indication: PRODUCT USED FOR UNKNOWN INDICATION
     Dosage: UNK
     Route: 065
  5. ONDANSETRON [Concomitant]
     Active Substance: ONDANSETRON
     Indication: PRODUCT USED FOR UNKNOWN INDICATION
     Dosage: UNK UNK, QD
  6. REQUIP [Concomitant]
     Active Substance: ROPINIROLE HYDROCHLORIDE
     Indication: PRODUCT USED FOR UNKNOWN INDICATION
     Dosage: UNK UNK, AS NECESSARY
  7. CALCIUM PLUS D3 [Concomitant]
     Dosage: UNK
  8. ENBREL [Suspect]
     Active Substance: ETANERCEPT
     Indication: PRODUCT USED FOR UNKNOWN INDICATION
     Dosage: UNK
     Route: 065
  9. KINERET [Suspect]
     Active Substance: ANAKINRA
     Indication: PRODUCT USED FOR UNKNOWN INDICATION
     Dosage: UNK
     Route: 065
  10. ORENCIA [Suspect]
     Active Substance: ABATACEPT
     Indication: PRODUCT USED FOR UNKNOWN INDICATION
     Dosage: UNK
     Route: 065
     Dates: start: 2017, end: 2017
  11. GABAPENTIN. [Concomitant]
     Active Substance: GABAPENTIN
     Indication: PRODUCT USED FOR UNKNOWN INDICATION
     Dosage: 100 MG, QD
  12. GERITOL [Concomitant]
     Active Substance: MINERALS\VITAMINS
     Indication: PRODUCT USED FOR UNKNOWN INDICATION
     Dosage: UNK
  13. HYDROXYCHLOROQUINE [Concomitant]
     Active Substance: HYDROXYCHLOROQUINE
     Indication: PRODUCT USED FOR UNKNOWN INDICATION
     Dosage: 200, BID
  14. LISINOPRIL. [Concomitant]
     Active Substance: LISINOPRIL
     Indication: PRODUCT USED FOR UNKNOWN INDICATION
     Dosage: 20 MG, QD
  15. ULTRACET [Concomitant]
     Active Substance: ACETAMINOPHEN\TRAMADOL HYDROCHLORIDE
     Dosage: UNK
  16. TRAMADOL HYDROCHLORIDE AND ACETAMINOPHEN [Concomitant]
     Active Substance: ACETAMINOPHEN\TRAMADOL HYDROCHLORIDE
     Indication: PRODUCT USED FOR UNKNOWN INDICATION
     Dosage: UNK
  17. PREDNISONE. [Concomitant]
     Active Substance: PREDNISONE
     Indication: PRODUCT USED FOR UNKNOWN INDICATION
     Dosage: UNK
  18. OMEPRAZOLE. [Concomitant]
     Active Substance: OMEPRAZOLE
     Dosage: 40 MG, QD
  19. CALCIUM PLUS VITAMIN D [Concomitant]
     Active Substance: CALCIUM\VITAMIN D
     Indication: PRODUCT USED FOR UNKNOWN INDICATION
     Dosage: UNK
  20. HUMIRA [Suspect]
     Active Substance: ADALIMUMAB
     Indication: PRODUCT USED FOR UNKNOWN INDICATION
     Dosage: UNK
     Route: 058
  21. PREDNISONE. [Concomitant]
     Active Substance: PREDNISONE
     Dosage: 200 MG, QD

REACTIONS (41)
  - Spinal operation [Unknown]
  - Road traffic accident [Recovered/Resolved]
  - Rheumatoid arthritis [Unknown]
  - Respiratory tract infection [Unknown]
  - Osteoarthritis [Unknown]
  - Cushingoid [Unknown]
  - Pelvic discomfort [Unknown]
  - Urinary tract infection [Unknown]
  - Decreased appetite [Unknown]
  - Complement factor C4 increased [Unknown]
  - Adverse drug reaction [Unknown]
  - Pain in extremity [Unknown]
  - Skin atrophy [Unknown]
  - Grimacing [Unknown]
  - Limb injury [Unknown]
  - Lung disorder [Unknown]
  - Hypergammaglobulinaemia [Unknown]
  - Post procedural complication [Not Recovered/Not Resolved]
  - Fibromyalgia [Unknown]
  - Sjogren^s syndrome [Unknown]
  - Joint effusion [Unknown]
  - Antinuclear antibody positive [Unknown]
  - Skin disorder [Unknown]
  - Foot deformity [Unknown]
  - Joint injury [Unknown]
  - Neck deformity [Unknown]
  - Skin ulcer [Unknown]
  - Complement factor C3 increased [Unknown]
  - Drug ineffective [Unknown]
  - Diarrhoea [Unknown]
  - Pain [Unknown]
  - Arthritis [Unknown]
  - Decubitus ulcer [Unknown]
  - Skin hyperpigmentation [Unknown]
  - Varicose ulceration [Unknown]
  - Bone metabolism disorder [Unknown]
  - Gait disturbance [Not Recovered/Not Resolved]
  - Nausea [Unknown]
  - Oedema peripheral [Unknown]
  - Clavicle fracture [Unknown]
  - Dysstasia [Unknown]

NARRATIVE: CASE EVENT DATE: 1999
